FAERS Safety Report 19081431 (Version 4)
Quarter: 2021Q4

REPORT INFORMATION
  Report Type: Spontaneous
  Country: CA (occurrence: CA)
  Receive Date: 20210331
  Receipt Date: 20211020
  Transmission Date: 20220303
  Serious: Yes (Other)
  Sender: FDA-Public Use
  Company Number: CA-ABBVIE-21K-028-3835463-00

PATIENT
  Age: 56 Year
  Sex: Female

DRUGS (26)
  1. HUMIRA [Suspect]
     Active Substance: ADALIMUMAB
     Indication: Rheumatoid arthritis
     Route: 058
  2. PREDNISONE [Suspect]
     Active Substance: PREDNISONE
     Indication: Rheumatoid arthritis
     Route: 065
  3. FOLIC ACID [Suspect]
     Active Substance: FOLIC ACID
     Indication: Rheumatoid arthritis
     Route: 065
  4. ARAVA [Suspect]
     Active Substance: LEFLUNOMIDE
     Indication: Rheumatoid arthritis
     Route: 065
  5. CELEBREX [Suspect]
     Active Substance: CELECOXIB
     Indication: Rheumatoid arthritis
     Route: 065
  6. DESOXIMETASONE [Suspect]
     Active Substance: DESOXIMETASONE
     Indication: Rheumatoid arthritis
     Route: 048
  7. ENBREL [Suspect]
     Active Substance: ETANERCEPT
     Indication: Rheumatoid arthritis
     Route: 058
  8. METHOTREXATE [Suspect]
     Active Substance: METHOTREXATE
     Indication: Rheumatoid arthritis
     Route: 058
  9. PHTHALYLSULFATHIAZOLE [Suspect]
     Active Substance: PHTHALYLSULFATHIAZOLE
     Indication: Rheumatoid arthritis
     Route: 065
  10. RITUXIMAB [Suspect]
     Active Substance: RITUXIMAB
     Indication: Rheumatoid arthritis
     Route: 065
  11. SULFASALAZINE [Suspect]
     Active Substance: SULFASALAZINE
     Indication: Rheumatoid arthritis
     Route: 065
  12. ACTEMRA [Suspect]
     Active Substance: TOCILIZUMAB
     Indication: Rheumatoid arthritis
     Route: 065
  13. FOSAMAX [Suspect]
     Active Substance: ALENDRONATE SODIUM
     Indication: Rheumatoid arthritis
     Route: 065
  14. HYDROXYCHLOROQUINE SULFATE [Suspect]
     Active Substance: HYDROXYCHLOROQUINE SULFATE
     Indication: Rheumatoid arthritis
     Route: 065
  15. ORENCIA [Suspect]
     Active Substance: ABATACEPT
     Indication: Rheumatoid arthritis
     Route: 058
  16. CIMZIA [Suspect]
     Active Substance: CERTOLIZUMAB PEGOL
     Indication: Rheumatoid arthritis
     Route: 058
  17. SIMPONI [Suspect]
     Active Substance: GOLIMUMAB
     Indication: Rheumatoid arthritis
     Route: 058
  18. CETIRIZINE [Suspect]
     Active Substance: CETIRIZINE HYDROCHLORIDE
     Indication: Rheumatoid arthritis
     Route: 065
  19. NAPROXEN SODIUM [Suspect]
     Active Substance: NAPROXEN SODIUM
     Indication: Rheumatoid arthritis
     Route: 065
  20. XELJANZ [Suspect]
     Active Substance: TOFACITINIB CITRATE
     Indication: Product used for unknown indication
     Route: 048
  21. REMICADE [Suspect]
     Active Substance: INFLIXIMAB
     Indication: Rheumatoid arthritis
     Route: 042
  22. CORTISONE ACETATE [Suspect]
     Active Substance: CORTISONE ACETATE
     Indication: Product used for unknown indication
     Route: 065
  23. NAPROSYN [Suspect]
     Active Substance: NAPROXEN
     Indication: Rheumatoid arthritis
     Route: 065
  24. CELECOXIB [Suspect]
     Active Substance: CELECOXIB
     Indication: Rheumatoid arthritis
     Route: 065
  25. ALENDRONATE SODIUM [Suspect]
     Active Substance: ALENDRONATE SODIUM
     Indication: Product used for unknown indication
     Route: 065
  26. PHTHALYLSULFATHIAZOLE [Suspect]
     Active Substance: PHTHALYLSULFATHIAZOLE
     Indication: Rheumatoid arthritis
     Route: 065

REACTIONS (26)
  - Prescribed overdose [Not Recovered/Not Resolved]
  - Glossodynia [Not Recovered/Not Resolved]
  - Hand deformity [Not Recovered/Not Resolved]
  - Off label use [Not Recovered/Not Resolved]
  - Pemphigus [Not Recovered/Not Resolved]
  - Intentional product use issue [Not Recovered/Not Resolved]
  - Contraindicated product administered [Not Recovered/Not Resolved]
  - Dizziness [Not Recovered/Not Resolved]
  - Drug intolerance [Not Recovered/Not Resolved]
  - Condition aggravated [Not Recovered/Not Resolved]
  - Fatigue [Not Recovered/Not Resolved]
  - Fibromyalgia [Not Recovered/Not Resolved]
  - Arthropathy [Not Recovered/Not Resolved]
  - Oedema [Not Recovered/Not Resolved]
  - Swelling [Not Recovered/Not Resolved]
  - Systemic lupus erythematosus [Not Recovered/Not Resolved]
  - Synovitis [Not Recovered/Not Resolved]
  - Nausea [Not Recovered/Not Resolved]
  - Diarrhoea [Not Recovered/Not Resolved]
  - Drug ineffective [Not Recovered/Not Resolved]
  - Vomiting [Not Recovered/Not Resolved]
  - Abdominal pain [Not Recovered/Not Resolved]
  - Abdominal discomfort [Not Recovered/Not Resolved]
  - Pain [Not Recovered/Not Resolved]
  - Rheumatoid arthritis [Not Recovered/Not Resolved]
  - Alopecia [Not Recovered/Not Resolved]
